FAERS Safety Report 5808019-0 (Version None)
Quarter: 2008Q3

REPORT INFORMATION
  Report Type: 
  Country: None (occurrence: None)
  Receive Date: 20080711
  Receipt Date: 20080630
  Transmission Date: 20090109
  Serious: Yes (Other)
  Sender: FDA-Public Use
  Company Number: BR-PFIZER INC-2008055781

PATIENT
  Sex: Male

DRUGS (1)
  1. ALDACTONE [Suspect]
     Route: 048

REACTIONS (6)
  - CARDIAC DISORDER [None]
  - DEMENTIA ALZHEIMER'S TYPE [None]
  - HYPERSENSITIVITY [None]
  - OSTEOPOROSIS [None]
  - SOMNOLENCE [None]
  - VENOUS OCCLUSION [None]
